FAERS Safety Report 4554760-X (Version None)
Quarter: 2005Q1

REPORT INFORMATION
  Report Type: 
  Country: None (occurrence: None)
  Receive Date: 20050118
  Receipt Date: 20041022
  Transmission Date: 20050727
  Serious: Yes (Hospitalization, Other)
  Sender: FDA-Public Use
  Company Number: NL-GLAXOSMITHKLINE-B0349366A

PATIENT
  Age: 2 Year
  Sex: Female

DRUGS (1)
  1. AMOXICILLIN TRIHYDRATE [Suspect]
     Indication: PYREXIA
     Route: 065

REACTIONS (32)
  - ACUTE GENERALISED EXANTHEMATOUS PUSTULOSIS [None]
  - AUTOIMMUNE DISORDER [None]
  - BLOOD ALBUMIN DECREASED [None]
  - BLOOD DISORDER [None]
  - BLOOD PRESSURE DECREASED [None]
  - C-REACTIVE PROTEIN INCREASED [None]
  - CONJUNCTIVAL HYPERAEMIA [None]
  - DERMATITIS EXFOLIATIVE [None]
  - ERYTHEMA [None]
  - HEART RATE INCREASED [None]
  - HYPOKINESIA [None]
  - INFECTION [None]
  - KAWASAKI'S DISEASE [None]
  - LEUKOCYTOSIS [None]
  - LIP DRY [None]
  - MALAISE [None]
  - MOBILITY DECREASED [None]
  - OEDEMA PERIPHERAL [None]
  - PAIN [None]
  - PAIN IN EXTREMITY [None]
  - PERIORBITAL OEDEMA [None]
  - PROTEINURIA [None]
  - PYREXIA [None]
  - RASH [None]
  - RESPIRATORY RATE INCREASED [None]
  - SHIFT TO THE LEFT [None]
  - SICKLE CELL ANAEMIA WITH CRISIS [None]
  - SKIN DEPIGMENTATION [None]
  - STAPHYLOCOCCAL SCALDED SKIN SYNDROME [None]
  - STREPTOCOCCAL INFECTION [None]
  - TONSILLAR DISORDER [None]
  - VIRAL INFECTION [None]
